FAERS Safety Report 5410951-7 (Version None)
Quarter: 2007Q3

REPORT INFORMATION
  Report Type: 
  Country: None (occurrence: None)
  Receive Date: 20070810
  Receipt Date: 20070803
  Transmission Date: 20080115
  Serious: Yes (Other)
  Sender: FDA-Public Use
  Company Number: NL-ABBOTT-07P-114-0376678-00

PATIENT
  Sex: Female

DRUGS (6)
  1. CLARITHROMYCIN [Suspect]
     Indication: HELICOBACTER INFECTION
     Dosage: PANTOPAC
     Route: 048
     Dates: start: 20070309, end: 20070314
  2. PANTOPRAZOLE SODIUM [Suspect]
     Indication: HELICOBACTER INFECTION
     Dosage: PANTOPAC
     Route: 048
     Dates: start: 20070309, end: 20070314
  3. AMOXICILLIN TRIHYDRATE [Suspect]
     Indication: HELICOBACTER INFECTION
     Route: 048
     Dates: start: 20070309, end: 20070314
  4. ENALAPRIL MALEATE [Concomitant]
     Indication: ESSENTIAL HYPERTENSION
     Route: 048
  5. VERAPAMIL [Concomitant]
     Indication: ESSENTIAL HYPERTENSION
     Route: 048
  6. HYDROCHLOROTHIAZIDE [Concomitant]
     Indication: ESSENTIAL HYPERTENSION
     Route: 048

REACTIONS (2)
  - ANGIOEDEMA [None]
  - BRONCHOSPASM [None]
